FAERS Safety Report 8910970 (Version 1)
Quarter: 2012Q4

REPORT INFORMATION
  Report Type: 
  Country: TW (occurrence: TW)
  Receive Date: 20121115
  Receipt Date: 20121115
  Transmission Date: 20130627
  Serious: Yes (Other)
  Sender: FDA-Public Use
  Company Number: TW-WATSON-2012-19321

PATIENT
  Age: 29 Year
  Sex: Male

DRUGS (6)
  1. ZOLPIDEM TARTRATE (UNKNOWN) [Suspect]
     Indication: SUBSTANCE ABUSE
     Dosage: 10 mg, single
     Route: 042
  2. ZOLPIDEM TARTRATE (UNKNOWN) [Suspect]
     Dosage: attempted to reduce dosage to 30 mg/daily
     Route: 065
  3. ZOLPIDEM TARTRATE (UNKNOWN) [Suspect]
     Dosage: 40 mg,
     Route: 065
  4. SALINE [Suspect]
     Indication: INTENTIONAL DRUG MISUSE
     Dosage: UNK
     Route: 042
  5. DULOXETINE [Concomitant]
     Indication: DEPRESSED MOOD
     Dosage: 60 mg, daily
     Route: 065
  6. FLUNITRAZEPAM [Concomitant]
     Indication: INSOMNIA
     Dosage: UNK
     Route: 065

REACTIONS (9)
  - Intentional drug misuse [Recovering/Resolving]
  - Carbuncle [Recovered/Resolved]
  - Thrombophlebitis [Recovered/Resolved]
  - Confusional state [Recovering/Resolving]
  - Communication disorder [Recovering/Resolving]
  - Emotional disorder [Recovering/Resolving]
  - Anxiety [Recovering/Resolving]
  - Wrong technique in drug usage process [None]
  - Incorrect route of drug administration [None]
